FAERS Safety Report 16921007 (Version 1)
Quarter: 2019Q4

REPORT INFORMATION
  Report Type: Spontaneous
  Country: US (occurrence: US)
  Receive Date: 20191015
  Receipt Date: 20191015
  Transmission Date: 20200122
  Serious: No
  Sender: FDA-Public Use
  Company Number: US-TEVA-2019-US-1120311

PATIENT
  Sex: Male

DRUGS (1)
  1. ALYQ [Suspect]
     Active Substance: TADALAFIL
     Indication: PULMONARY ARTERIAL HYPERTENSION
     Dosage: 40 MILLIGRAM DAILY;
     Route: 065
     Dates: start: 20191005

REACTIONS (8)
  - Fatigue [Unknown]
  - Drug ineffective [Unknown]
  - Dizziness [Unknown]
  - Myalgia [Unknown]
  - Palpitations [Unknown]
  - Asthenia [Unknown]
  - Back pain [Unknown]
  - Dyspnoea [Unknown]

NARRATIVE: CASE EVENT DATE: 20191005
